FAERS Safety Report 15757297 (Version 3)
Quarter: 2019Q1

REPORT INFORMATION
  Report Type: Report from Study
  Country: US (occurrence: US)
  Receive Date: 20181224
  Receipt Date: 20190221
  Transmission Date: 20190417
  Serious: No
  Sender: FDA-Public Use
  Company Number: PHEH2018US053886

PATIENT
  Sex: Male
  Weight: 111.58 kg

DRUGS (1)
  1. COSENTYX [Suspect]
     Active Substance: SECUKINUMAB
     Indication: PSORIATIC ARTHROPATHY
     Route: 058
     Dates: start: 201801

REACTIONS (7)
  - Pain [Unknown]
  - Influenza like illness [Unknown]
  - Nasopharyngitis [Unknown]
  - Fatigue [Unknown]
  - Nasal congestion [Unknown]
  - Asthenia [Unknown]
  - Drug ineffective [Unknown]
